FAERS Safety Report 8491119-7 (Version None)
Quarter: 2012Q3

REPORT INFORMATION
  Report Type: 
  Country: None (occurrence: None)
  Receive Date: 20120706
  Receipt Date: 20120628
  Transmission Date: 20120928
  Serious: Yes (Hospitalization)
  Sender: FDA-Public Use
  Company Number: US-BAYER-2012-065046

PATIENT
  Age: 54 Year
  Sex: Female

DRUGS (5)
  1. FLURBIPROFEN [Concomitant]
     Dosage: 100 MG, UNK
     Route: 048
  2. SYNTHROID [Concomitant]
     Dosage: 0.075 MG, UNK
     Route: 048
  3. OXAZEPAM [Concomitant]
     Dosage: 15 MG, UNK
     Route: 048
  4. YAZ [Suspect]
  5. DROSPIRENONE AND ETHINYL ESTRADIOL [Suspect]

REACTIONS (1)
  - PULMONARY EMBOLISM [None]
